FAERS Safety Report 12343241 (Version 2)
Quarter: 2016Q2

REPORT INFORMATION
  Report Type: Report from Study
  Country: IT (occurrence: IT)
  Receive Date: 20160506
  Receipt Date: 20160523
  Transmission Date: 20160815
  Serious: Yes (Other)
  Sender: FDA-Public Use
  Company Number: IT-TEVA-657931ACC

PATIENT
  Age: 57 Year
  Sex: Male

DRUGS (4)
  1. OXCARBAZEPINE. [Concomitant]
     Active Substance: OXCARBAZEPINE
     Indication: SEIZURE
     Dosage: 300 MILLIGRAM DAILY; ONE IN THE EVENING
     Route: 048
  2. COPAXONE [Suspect]
     Active Substance: GLATIRAMER ACETATE
     Indication: RELAPSING-REMITTING MULTIPLE SCLEROSIS
     Route: 058
     Dates: start: 201508
  3. PROPAFENONE. [Concomitant]
     Active Substance: PROPAFENONE
     Indication: ARRHYTHMIA
     Dosage: 100 MILLIGRAM DAILY; ONE IN THE MORNING AND ONE IN THE EVENING FROM SIX OR SEVEN YEARS
     Route: 048
  4. LOSAPREX [Concomitant]
     Active Substance: LOSARTAN POTASSIUM
     Indication: HYPERTENSION
     Dosage: 50 MILLIGRAM DAILY; SIX OR SEVEN YEARS
     Route: 048

REACTIONS (7)
  - Feeling hot [Unknown]
  - Peripheral coldness [Not Recovered/Not Resolved]
  - Lip oedema [Unknown]
  - Feeling hot [Recovered/Resolved]
  - Swelling face [Unknown]
  - Injection site erythema [Recovering/Resolving]
  - Dizziness [Not Recovered/Not Resolved]

NARRATIVE: CASE EVENT DATE: 20160428
